FAERS Safety Report 12772010 (Version 2)
Quarter: 2016Q4

REPORT INFORMATION
  Report Type: Spontaneous
  Country: US (occurrence: US)
  Receive Date: 20160922
  Receipt Date: 20161014
  Transmission Date: 20170207
  Serious: Yes (Hospitalization, Other)
  Sender: FDA-Public Use
  Company Number: US-JNJFOC-20160910416

PATIENT
  Sex: Male
  Weight: 95.71 kg

DRUGS (2)
  1. TRUVADA [Suspect]
     Active Substance: EMTRICITABINE\TENOFOVIR DISOPROXIL FUMARATE
     Indication: PRODUCT USED FOR UNKNOWN INDICATION
     Route: 065
     Dates: start: 2016
  2. PREZCOBIX [Suspect]
     Active Substance: COBICISTAT\DARUNAVIR ETHANOLATE
     Indication: HIV INFECTION
     Dosage: 800/150
     Route: 048
     Dates: start: 201608, end: 20160910

REACTIONS (4)
  - Pyrexia [Recovered/Resolved with Sequelae]
  - Pain [Recovered/Resolved with Sequelae]
  - Drug-induced liver injury [Recovered/Resolved with Sequelae]
  - Headache [Unknown]

NARRATIVE: CASE EVENT DATE: 2016
